FAERS Safety Report 18057115 (Version 1)
Quarter: 2020Q3

REPORT INFORMATION
  Report Type: Spontaneous
  Country: RU (occurrence: RU)
  Receive Date: 20200722
  Receipt Date: 20200722
  Transmission Date: 20201103
  Serious: No
  Sender: FDA-Public Use
  Company Number: RU-B.BRAUN MEDICAL INC.-2087632

PATIENT
  Age: 40 Year
  Sex: Female
  Weight: 69 kg

DRUGS (5)
  1. ASCORBIC ACID. [Suspect]
     Active Substance: ASCORBIC ACID
     Route: 041
     Dates: start: 20200527, end: 20200527
  2. DEXTROSE INJECTIONS USP 0264?7510?00 0264?7510?20 [Suspect]
     Active Substance: DEXTROSE
     Indication: INFECTION
     Route: 041
     Dates: start: 20200527, end: 20200527
  3. CEFTRIAXONE. [Concomitant]
     Active Substance: CEFTRIAXONE
     Route: 030
     Dates: start: 20200527, end: 20200601
  4. PARACETAMOL [Concomitant]
     Active Substance: ACETAMINOPHEN
     Route: 048
     Dates: start: 20200527, end: 20200601
  5. AZITHROMYCIN ANHYDROUS. [Concomitant]
     Active Substance: AZITHROMYCIN ANHYDROUS
     Route: 048
     Dates: start: 20200527, end: 20200601

REACTIONS (2)
  - Urticaria [None]
  - Pruritus [None]
